FAERS Safety Report 24013410 (Version 1)
Quarter: 2024Q2

REPORT INFORMATION
  Report Type: Spontaneous
  Country: DK (occurrence: DK)
  Receive Date: 20240626
  Receipt Date: 20240626
  Transmission Date: 20240716
  Serious: Yes (Hospitalization, Other)
  Sender: FDA-Public Use
  Company Number: None

PATIENT
  Age: 8 Decade
  Sex: Female

DRUGS (7)
  1. ALENDRONATE SODIUM [Suspect]
     Active Substance: ALENDRONATE SODIUM
     Indication: Osteoporosis
     Dosage: 70 MILLIGRAM, QW
     Route: 048
     Dates: start: 2013, end: 2024
  2. PROPRANOLOL HYDROCHLORIDE [Concomitant]
     Active Substance: PROPRANOLOL HYDROCHLORIDE
     Indication: Hypertension
     Dosage: UNK
     Dates: start: 20221220
  3. LANSOPRAZOLE [Concomitant]
     Active Substance: LANSOPRAZOLE
     Indication: Gastrooesophageal reflux disease
     Dosage: UNK
     Dates: start: 20170313
  4. ATORVASTATIN CALCIUM [Concomitant]
     Active Substance: ATORVASTATIN CALCIUM
     Indication: Hypercholesterolaemia
     Dosage: UNK
     Dates: start: 20220616
  5. VENTOLINE ROTACAPS [Concomitant]
     Indication: Bronchospasm
     Dosage: UNK
     Dates: start: 20240206
  6. ASPIRIN [Concomitant]
     Active Substance: ASPIRIN
     Indication: Anticoagulant therapy
     Dosage: UNK
     Dates: start: 20111117
  7. OLODATEROL HYDROCHLORIDE\TIOTROPIUM BROMIDE MONOHYDRATE [Concomitant]
     Active Substance: OLODATEROL HYDROCHLORIDE\TIOTROPIUM BROMIDE MONOHYDRATE
     Indication: Chronic obstructive pulmonary disease
     Dosage: STRENGTH: 2.5+2.5 MIKROGRAM, INHALATION SOLUTIO
     Dates: start: 20230808

REACTIONS (4)
  - Osteonecrosis of jaw [Not Recovered/Not Resolved]
  - Abscess jaw [Unknown]
  - Refeeding syndrome [Unknown]
  - Swelling face [Unknown]

NARRATIVE: CASE EVENT DATE: 20210101
